FAERS Safety Report 6155684-7 (Version None)
Quarter: 2009Q2

REPORT INFORMATION
  Report Type: 
  Country: None (occurrence: None)
  Receive Date: 20090415
  Receipt Date: 20090410
  Transmission Date: 20091009
  Serious: Yes (Other)
  Sender: FDA-Public Use
  Company Number: A0777884A

PATIENT
  Age: 51 Year
  Sex: Female

DRUGS (5)
  1. VERAMYST [Suspect]
     Dosage: 1SPR PER DAY
     Route: 045
     Dates: start: 20090407
  2. HYDROXYCHLOROQUINE SULFATE [Concomitant]
  3. ALTACE [Concomitant]
  4. RESTASIS [Concomitant]
  5. NASONEX [Concomitant]

REACTIONS (3)
  - BLOOD PRESSURE INCREASED [None]
  - EYE HAEMORRHAGE [None]
  - OCULAR HYPERAEMIA [None]
